FAERS Safety Report 15940804 (Version 1)
Quarter: 2019Q1

REPORT INFORMATION
  Report Type: Report from Study
  Country: US (occurrence: US)
  Receive Date: 20190208
  Receipt Date: 20190208
  Transmission Date: 20190417
  Serious: Yes (Hospitalization)
  Sender: FDA-Public Use
  Company Number: US-TEVA-2019-US-1008351

PATIENT
  Age: 57 Year
  Sex: Female

DRUGS (11)
  1. DETROL LA [Concomitant]
     Active Substance: TOLTERODINE TARTRATE
  2. MOVANTIK [Concomitant]
     Active Substance: NALOXEGOL OXALATE
  3. OLANZAPINE. [Concomitant]
     Active Substance: OLANZAPINE
  4. EFFEXOR XR [Concomitant]
     Active Substance: VENLAFAXINE HYDROCHLORIDE
  5. LUNESTA [Concomitant]
     Active Substance: ESZOPICLONE
  6. COPAXONE [Suspect]
     Active Substance: GLATIRAMER ACETATE
     Indication: MULTIPLE SCLEROSIS
     Route: 058
     Dates: start: 20180120
  7. ELIQUIS [Concomitant]
     Active Substance: APIXABAN
  8. MORPHINE [Concomitant]
     Active Substance: MORPHINE
  9. MYRBETRIQ [Concomitant]
     Active Substance: MIRABEGRON
  10. NEURONTIN [Concomitant]
     Active Substance: GABAPENTIN
  11. TEGRETOL [Concomitant]
     Active Substance: CARBAMAZEPINE

REACTIONS (3)
  - Deep vein thrombosis [Not Recovered/Not Resolved]
  - Depression [Not Recovered/Not Resolved]
  - Peripheral swelling [Not Recovered/Not Resolved]

NARRATIVE: CASE EVENT DATE: 20190125
